FAERS Safety Report 17886952 (Version 1)
Quarter: 2020Q2

REPORT INFORMATION
  Report Type: Spontaneous
  Country: TW (occurrence: TW)
  Receive Date: 20200612
  Receipt Date: 20200612
  Transmission Date: 20200714
  Serious: Yes (Hospitalization, Other)
  Sender: FDA-Public Use
  Company Number: TW-ADVANZ PHARMA-202005006168

PATIENT

DRUGS (3)
  1. IMURAN [Suspect]
     Active Substance: AZATHIOPRINE
     Indication: VITILIGO
     Dosage: UNK, QD
     Route: 065
     Dates: start: 20190426
  2. HYDROXYCHLOROQUINE SULFATE (AUTHORIZED GENERIC),PLAQUENIL [Suspect]
     Active Substance: HYDROXYCHLOROQUINE SULFATE
     Indication: VITILIGO
     Dosage: UNK, QD
     Route: 065
     Dates: start: 20190426
  3. PREDNISOLONE. [Suspect]
     Active Substance: PREDNISOLONE
     Indication: VITILIGO
     Dosage: UNK, QD
     Route: 065
     Dates: start: 20190426

REACTIONS (16)
  - Leukocytosis [Unknown]
  - Skin exfoliation [Recovered/Resolved]
  - Erythema [Recovered/Resolved]
  - Oedema [Recovered/Resolved]
  - Genital erythema [Recovered/Resolved]
  - Drug hypersensitivity [Recovered/Resolved]
  - Rash [Recovered/Resolved]
  - Acute generalised exanthematous pustulosis [Recovered/Resolved with Sequelae]
  - Skin plaque [Recovered/Resolved]
  - Pyrexia [Recovered/Resolved]
  - Pustule [Recovered/Resolved]
  - Swelling face [Recovered/Resolved]
  - Neutrophil count increased [Recovered/Resolved]
  - Rash pruritic [Recovered/Resolved]
  - Discharge [Recovered/Resolved]
  - Neutrophilic dermatosis [Recovered/Resolved]

NARRATIVE: CASE EVENT DATE: 20190511
